FAERS Safety Report 21050922 (Version 2)
Quarter: 2022Q3

REPORT INFORMATION
  Report Type: Report from Study
  Country: DE (occurrence: DE)
  Receive Date: 20220707
  Receipt Date: 20220805
  Transmission Date: 20221026
  Serious: Yes (Hospitalization)
  Sender: FDA-Public Use
  Company Number: DE-NOVARTISPH-NVSC2022DE151839

PATIENT
  Age: 81 Year
  Sex: Female

DRUGS (2)
  1. TRAMETINIB [Suspect]
     Active Substance: TRAMETINIB
     Indication: Cerebral haemorrhage
     Dosage: 2 MG, EVERYDAY
     Route: 048
     Dates: start: 20210812, end: 20220626
  2. DABRAFENIB [Suspect]
     Active Substance: DABRAFENIB
     Indication: Cerebral haemorrhage
     Dosage: 300 MG, EVERYDAY
     Route: 048
     Dates: start: 20210812, end: 20220626

REACTIONS (1)
  - Haemorrhage intracranial [Recovered/Resolved]

NARRATIVE: CASE EVENT DATE: 20220626
